FAERS Safety Report 9916004 (Version 2)
Quarter: 2014Q1

REPORT INFORMATION
  Report Type: Spontaneous
  Country: IN (occurrence: None)
  Receive Date: 20140219
  Receipt Date: 20140227
  Transmission Date: 20141002
  Serious: Yes (Other)
  Sender: FDA-Public Use
  Company Number: AUR-APL-2014-01865

PATIENT
  Age: 12 Year
  Sex: Female

DRUGS (4)
  1. LAMOTRIGINE [Suspect]
     Indication: MYOCLONIC EPILEPSY
  2. CARBAMAZEPINE(CARBAMAZEPINE) [Concomitant]
  3. PHENOBARBITONE (PHENOBARBITAL) [Concomitant]
  4. VALPROATE (VALPROATE SODIUM) [Concomitant]

REACTIONS (3)
  - Myoclonic epilepsy [None]
  - Drug ineffective [None]
  - Condition aggravated [None]
